FAERS Safety Report 11568615 (Version 1)
Quarter: 2015Q3

REPORT INFORMATION
  Report Type: Report from Study
  Country: BR (occurrence: BR)
  Receive Date: 20150929
  Receipt Date: 20150929
  Transmission Date: 20151125
  Serious: Yes (Hospitalization, Other)
  Sender: FDA-Public Use
  Company Number: PHHY2015BR114414

PATIENT
  Sex: Female
  Weight: 108 kg

DRUGS (1)
  1. FORASEQ [Suspect]
     Active Substance: BUDESONIDE\FORMOTEROL FUMARATE
     Indication: DYSPNOEA
     Dosage: 3 DF (FORMOTEROL FUMARATE 12 UG AND BUDESONIDE 400 UG), QD
     Route: 065

REACTIONS (4)
  - Alveolar lung disease [Recovering/Resolving]
  - Influenza [Recovering/Resolving]
  - Asthma [Recovering/Resolving]
  - Product use issue [Unknown]
